FAERS Safety Report 21622440 (Version 1)
Quarter: 2022Q4

REPORT INFORMATION
  Report Type: Spontaneous
  Country: JP (occurrence: JP)
  Receive Date: 20221121
  Receipt Date: 20221121
  Transmission Date: 20230113
  Serious: Yes (Other)
  Sender: FDA-Public Use
  Company Number: JP-AJKK-JPG2021JP002699

PATIENT
  Age: 76 Year
  Sex: Male

DRUGS (3)
  1. ANAPEINE [Suspect]
     Active Substance: ROPIVACAINE HYDROCHLORIDE
     Indication: Product used for unknown indication
     Dosage: UNK (0.2 % 100 ML 1 BAG)
     Route: 065
     Dates: start: 201808, end: 201808
  2. ANAPEINE [Suspect]
     Active Substance: ROPIVACAINE HYDROCHLORIDE
     Dosage: UNK (STRENGTH 7.5 MG/ML)/(0.75 % 20 ML 1 AMPOULE)
     Route: 065
     Dates: start: 201808, end: 201808
  3. XYLOCAINE [Suspect]
     Active Substance: LIDOCAINE HYDROCHLORIDE
     Indication: Product used for unknown indication
     Dosage: UNK (1% 10 ML 1 AMPOULE)
     Route: 065
     Dates: start: 201808, end: 201808

REACTIONS (1)
  - Cauda equina syndrome [Unknown]
